FAERS Safety Report 25183098 (Version 1)
Quarter: 2025Q2

REPORT INFORMATION
  Report Type: Spontaneous
  Country: KR (occurrence: KR)
  Receive Date: 20250410
  Receipt Date: 20250410
  Transmission Date: 20250717
  Serious: Yes (Other)
  Sender: MYLAN
  Company Number: KR-MYLANLABS-2025M1029641

PATIENT
  Sex: Female

DRUGS (32)
  1. NEURONTIN [Suspect]
     Active Substance: GABAPENTIN
     Indication: Product used for unknown indication
     Dosage: 1 DOSAGE FORM, BID
     Route: 065
     Dates: start: 20230816, end: 20230823
  2. NEURONTIN [Suspect]
     Active Substance: GABAPENTIN
     Dosage: 1 DOSAGE FORM, BID
     Dates: start: 20230816, end: 20230823
  3. NEURONTIN [Suspect]
     Active Substance: GABAPENTIN
     Dosage: 1 DOSAGE FORM, BID
     Dates: start: 20230816, end: 20230823
  4. NEURONTIN [Suspect]
     Active Substance: GABAPENTIN
     Dosage: 1 DOSAGE FORM, BID
     Route: 065
     Dates: start: 20230816, end: 20230823
  5. NEURONTIN [Suspect]
     Active Substance: GABAPENTIN
     Route: 065
  6. NEURONTIN [Suspect]
     Active Substance: GABAPENTIN
  7. NEURONTIN [Suspect]
     Active Substance: GABAPENTIN
  8. NEURONTIN [Suspect]
     Active Substance: GABAPENTIN
     Route: 065
  9. CELECOXIB [Suspect]
     Active Substance: CELECOXIB
     Indication: Product used for unknown indication
     Dosage: 1 DOSAGE FORM, BID
     Route: 065
     Dates: start: 20230816, end: 20230823
  10. CELECOXIB [Suspect]
     Active Substance: CELECOXIB
     Dosage: 1 DOSAGE FORM, BID
     Dates: start: 20230816, end: 20230823
  11. CELECOXIB [Suspect]
     Active Substance: CELECOXIB
     Dosage: 1 DOSAGE FORM, BID
     Dates: start: 20230816, end: 20230823
  12. CELECOXIB [Suspect]
     Active Substance: CELECOXIB
     Dosage: 1 DOSAGE FORM, BID
     Route: 065
     Dates: start: 20230816, end: 20230823
  13. CELECOXIB [Suspect]
     Active Substance: CELECOXIB
     Route: 065
  14. CELECOXIB [Suspect]
     Active Substance: CELECOXIB
  15. CELECOXIB [Suspect]
     Active Substance: CELECOXIB
  16. CELECOXIB [Suspect]
     Active Substance: CELECOXIB
     Route: 065
  17. LIMAPROST [Suspect]
     Active Substance: LIMAPROST
     Indication: Product used for unknown indication
     Dosage: 1 DOSAGE FORM, BID
     Route: 065
     Dates: start: 20230816, end: 20230823
  18. LIMAPROST [Suspect]
     Active Substance: LIMAPROST
     Dosage: 1 DOSAGE FORM, BID
     Dates: start: 20230816, end: 20230823
  19. LIMAPROST [Suspect]
     Active Substance: LIMAPROST
     Dosage: 1 DOSAGE FORM, BID
     Dates: start: 20230816, end: 20230823
  20. LIMAPROST [Suspect]
     Active Substance: LIMAPROST
     Dosage: 1 DOSAGE FORM, BID
     Route: 065
     Dates: start: 20230816, end: 20230823
  21. LIMAPROST [Suspect]
     Active Substance: LIMAPROST
     Route: 065
  22. LIMAPROST [Suspect]
     Active Substance: LIMAPROST
  23. LIMAPROST [Suspect]
     Active Substance: LIMAPROST
  24. LIMAPROST [Suspect]
     Active Substance: LIMAPROST
     Route: 065
  25. ESOMEPRAZOLE MAGNESIUM [Suspect]
     Active Substance: ESOMEPRAZOLE MAGNESIUM
     Indication: Product used for unknown indication
     Dosage: 1 DOSAGE FORM, BID
     Route: 065
     Dates: start: 20230816, end: 20230823
  26. ESOMEPRAZOLE MAGNESIUM [Suspect]
     Active Substance: ESOMEPRAZOLE MAGNESIUM
     Dosage: 1 DOSAGE FORM, BID
     Dates: start: 20230816, end: 20230823
  27. ESOMEPRAZOLE MAGNESIUM [Suspect]
     Active Substance: ESOMEPRAZOLE MAGNESIUM
     Dosage: 1 DOSAGE FORM, BID
     Dates: start: 20230816, end: 20230823
  28. ESOMEPRAZOLE MAGNESIUM [Suspect]
     Active Substance: ESOMEPRAZOLE MAGNESIUM
     Dosage: 1 DOSAGE FORM, BID
     Route: 065
     Dates: start: 20230816, end: 20230823
  29. ESOMEPRAZOLE MAGNESIUM [Suspect]
     Active Substance: ESOMEPRAZOLE MAGNESIUM
     Route: 065
  30. ESOMEPRAZOLE MAGNESIUM [Suspect]
     Active Substance: ESOMEPRAZOLE MAGNESIUM
  31. ESOMEPRAZOLE MAGNESIUM [Suspect]
     Active Substance: ESOMEPRAZOLE MAGNESIUM
  32. ESOMEPRAZOLE MAGNESIUM [Suspect]
     Active Substance: ESOMEPRAZOLE MAGNESIUM
     Route: 065

REACTIONS (3)
  - Facial paralysis [Unknown]
  - Headache [Unknown]
  - Face oedema [Unknown]

NARRATIVE: CASE EVENT DATE: 20230816
